FAERS Safety Report 24084111 (Version 6)
Quarter: 2025Q1

REPORT INFORMATION
  Report Type: Report from Study
  Country: CA (occurrence: CA)
  Receive Date: 20240712
  Receipt Date: 20250122
  Transmission Date: 20250408
  Serious: No
  Sender: ROCHE
  Company Number: CA-ROCHE-10000022360

PATIENT
  Age: 34 Year
  Sex: Female

DRUGS (4)
  1. OCREVUS [Suspect]
     Active Substance: OCRELIZUMAB
     Indication: Relapsing-remitting multiple sclerosis
     Dosage: 300 MG AT DAY 0 AND 14, THEN 600 MG EVERY 6 MONTHS
     Route: 042
     Dates: start: 20180326
  2. OCREVUS [Suspect]
     Active Substance: OCRELIZUMAB
     Route: 042
     Dates: start: 20250107
  3. GABAPENTIN [Concomitant]
     Active Substance: GABAPENTIN
  4. LYRICA [Concomitant]
     Active Substance: PREGABALIN

REACTIONS (3)
  - Herpes zoster [Recovering/Resolving]
  - Pain [Not Recovered/Not Resolved]
  - Anxiety [Unknown]

NARRATIVE: CASE EVENT DATE: 20240630
